FAERS Safety Report 25852041 (Version 3)
Quarter: 2025Q4

REPORT INFORMATION
  Report Type: Report from Study
  Country: US (occurrence: US)
  Receive Date: 20250926
  Receipt Date: 20251023
  Transmission Date: 20260118
  Serious: Yes (Other)
  Sender: EISAI
  Company Number: US-Eisai-EC-2025-197380

PATIENT
  Age: 51 Year
  Sex: Female

DRUGS (5)
  1. LENVIMA [Suspect]
     Active Substance: LENVATINIB
     Indication: Thyroid cancer
     Route: 048
     Dates: start: 202506, end: 202508
  2. LENVIMA [Suspect]
     Active Substance: LENVATINIB
     Route: 048
     Dates: start: 202508, end: 20250902
  3. LENVIMA [Suspect]
     Active Substance: LENVATINIB
     Dosage: THERAPY HELD ON SEP2 AND SEP 3
     Route: 048
     Dates: start: 20250904, end: 20250909
  4. BUPRENORPHINE [Concomitant]
     Active Substance: BUPRENORPHINE
  5. PROPRANOLOL [Concomitant]
     Active Substance: PROPRANOLOL HYDROCHLORIDE

REACTIONS (10)
  - Electrocardiogram QT prolonged [Not Recovered/Not Resolved]
  - Arthralgia [Recovering/Resolving]
  - Constipation [Recovering/Resolving]
  - Vision blurred [Not Recovered/Not Resolved]
  - Joint stiffness [Not Recovered/Not Resolved]
  - Headache [Recovering/Resolving]
  - Myalgia [Recovering/Resolving]
  - Musculoskeletal stiffness [Recovering/Resolving]
  - Hypoaesthesia [Recovering/Resolving]
  - Paraesthesia [Recovering/Resolving]

NARRATIVE: CASE EVENT DATE: 20250101
